FAERS Safety Report 14353732 (Version 5)
Quarter: 2018Q3

REPORT INFORMATION
  Report Type: Report from Study
  Country: None (occurrence: US)
  Receive Date: 20180105
  Receipt Date: 20180921
  Transmission Date: 20181010
  Serious: Yes (Hospitalization, Congenital Anomaly)
  Sender: FDA-Public Use
  Company Number: US-ABBVIE-17K-163-2185719-00

PATIENT
  Age: 71 Year
  Sex: Female
  Weight: 59.02 kg

DRUGS (1)
  1. HUMIRA [Suspect]
     Active Substance: ADALIMUMAB
     Indication: CROHN^S DISEASE
     Route: 058
     Dates: start: 201612, end: 2018

REACTIONS (11)
  - Gastrointestinal oedema [Recovered/Resolved]
  - Functional gastrointestinal disorder [Recovered/Resolved]
  - Crohn^s disease [Unknown]
  - Drug effect decreased [Not Recovered/Not Resolved]
  - Large intestinal stenosis [Not Recovered/Not Resolved]
  - Crohn^s disease [Recovered/Resolved]
  - Small intestinal obstruction [Recovered/Resolved]
  - Abdominal rigidity [Unknown]
  - Diarrhoea [Unknown]
  - Crohn^s disease [Unknown]
  - Abdominal pain upper [Unknown]

NARRATIVE: CASE EVENT DATE: 201612
